FAERS Safety Report 15632336 (Version 1)
Quarter: 2018Q4

REPORT INFORMATION
  Report Type: Spontaneous
  Country: US (occurrence: US)
  Receive Date: 20181113
  Receipt Date: 20181113
  Transmission Date: 20190205
  Serious: No
  Sender: FDA-Public Use
  Company Number: None

PATIENT
  Age: 33 Year
  Sex: Female
  Weight: 67.5 kg

DRUGS (5)
  1. ZYRTEC [Concomitant]
     Active Substance: CETIRIZINE HYDROCHLORIDE
  2. ESCITALOPRAM [Suspect]
     Active Substance: ESCITALOPRAM OXALATE
     Indication: ANXIETY
     Dosage: ?          QUANTITY:1 TABLET(S);?
     Route: 048
     Dates: start: 20140701, end: 20170701
  3. VITAMIN D [Concomitant]
     Active Substance: CHOLECALCIFEROL
  4. MULTIVITAMIN [Concomitant]
     Active Substance: VITAMINS
  5. ESCITALOPRAM [Suspect]
     Active Substance: ESCITALOPRAM OXALATE
     Indication: DEPRESSION
     Dosage: ?          QUANTITY:1 TABLET(S);?
     Route: 048
     Dates: start: 20140701, end: 20170701

REACTIONS (7)
  - Insomnia [None]
  - Increased appetite [None]
  - Weight increased [None]
  - Tremor [None]
  - Fatigue [None]
  - Lack of satiety [None]
  - Irritability [None]

NARRATIVE: CASE EVENT DATE: 20170101
